FAERS Safety Report 11114825 (Version 1)
Quarter: 2015Q2

REPORT INFORMATION
  Report Type: Spontaneous
  Country: US (occurrence: None)
  Receive Date: 20150514
  Receipt Date: 20150514
  Transmission Date: 20150821
  Serious: Yes (Disabling)
  Sender: FDA-Public Use
  Company Number: None

PATIENT
  Age: 68 Year
  Sex: Female
  Weight: 38.56 kg

DRUGS (10)
  1. OMEGA 3 [Concomitant]
     Active Substance: OMEGA-3 FATTY ACIDS
  2. MUCUNA PRURIENS [Concomitant]
  3. NORVASC [Concomitant]
     Active Substance: AMLODIPINE BESYLATE
  4. VITAMIN B COMPLEX [Concomitant]
     Active Substance: CYANOCOBALAMIN\DEXPANTHENOL\NIACINAMIDE\PYRIDOXINE HYDROCHLORIDE\RIBOFLAVIN 5^-PHOSPHATE SODIUM\THIAMINE HYDROCHLORIDE\VITAMIN B COMPLEX
  5. D-2 [Concomitant]
  6. AMANTADINE [Suspect]
     Active Substance: AMANTADINE
     Indication: NERVOUS SYSTEM DISORDER
     Dosage: 1
     Route: 048
     Dates: start: 20121101, end: 20150512
  7. GASTRODIN [Concomitant]
  8. POTASSIUM SUPPLEMENT [Concomitant]
  9. VITAMIN B12 [Concomitant]
     Active Substance: CYANOCOBALAMIN
  10. ACIDOPHOLOUS [Concomitant]

REACTIONS (10)
  - Disorientation [None]
  - Aphagia [None]
  - Thinking abnormal [None]
  - Incontinence [None]
  - Mobility decreased [None]
  - Drug dose omission [None]
  - Aphasia [None]
  - Therapy cessation [None]
  - Therapeutic response decreased [None]
  - Balance disorder [None]

NARRATIVE: CASE EVENT DATE: 20150513
